FAERS Safety Report 6675674-5 (Version None)
Quarter: 2010Q2

REPORT INFORMATION
  Report Type: 
  Country: None (occurrence: None)
  Receive Date: 20100409
  Receipt Date: 20100330
  Transmission Date: 20101027
  Serious: Yes (Other)
  Sender: FDA-Public Use
  Company Number: GB-ELI_LILLY_AND_COMPANY-GB201003008051

PATIENT
  Age: 70 Year
  Sex: Female

DRUGS (5)
  1. CYMBALTA [Suspect]
     Indication: DEPRESSION
     Dosage: 20 UG, UNKNOWN
     Route: 048
     Dates: start: 20091014, end: 20100305
  2. AMLODIPINE [Concomitant]
     Dosage: 5 MG, UNKNOWN
     Route: 048
     Dates: start: 20050101
  3. CANDESARTAN [Concomitant]
     Dosage: 4 MG, UNKNOWN
     Route: 048
     Dates: start: 20050101
  4. NEXIUM [Concomitant]
     Dosage: UNK, UNKNOWN
     Route: 048
     Dates: start: 19900101
  5. SOLIFENACIN [Concomitant]
     Dosage: 5 MG, UNKNOWN
     Route: 048
     Dates: start: 20090101, end: 20090101

REACTIONS (5)
  - ABDOMINAL PAIN [None]
  - BACK PAIN [None]
  - MUSCLE SPASMS [None]
  - NAUSEA [None]
  - PYREXIA [None]
